FAERS Safety Report 13791792 (Version 1)
Quarter: 2017Q3

REPORT INFORMATION
  Report Type: Other
  Country: FR (occurrence: FR)
  Receive Date: 20170725
  Receipt Date: 20170725
  Transmission Date: 20171127
  Serious: Yes (Hospitalization, Other)
  Sender: FDA-Public Use
  Company Number: FR-IMPAX LABORATORIES, INC-2017-IPXL-02193

PATIENT
  Age: 70 Year
  Sex: Male

DRUGS (3)
  1. LERCANIDIPINE [Concomitant]
     Active Substance: LERCANIDIPINE
     Indication: PRODUCT USED FOR UNKNOWN INDICATION
     Route: 065
  2. ALBENZA [Suspect]
     Active Substance: ALBENDAZOLE
     Indication: TOXOCARIASIS
     Dosage: 400 MG, BID
     Route: 048
     Dates: start: 20170527, end: 201706
  3. ALBENZA [Suspect]
     Active Substance: ALBENDAZOLE
     Dosage: 400 MG, QD
     Route: 048
     Dates: start: 20170603, end: 20170607

REACTIONS (3)
  - Cholestasis [Recovering/Resolving]
  - Hepatocellular injury [Recovering/Resolving]
  - Hepatic enzyme increased [Recovering/Resolving]

NARRATIVE: CASE EVENT DATE: 2017
